FAERS Safety Report 9604268 (Version 1)
Quarter: 2013Q4

REPORT INFORMATION
  Report Type: Spontaneous
  Country: FR (occurrence: FR)
  Receive Date: 20131008
  Receipt Date: 20131008
  Transmission Date: 20140711
  Serious: Yes (Hospitalization)
  Sender: FDA-Public Use
  Company Number: PHHY2013FR111331

PATIENT
  Age: 46 Year
  Sex: Male

DRUGS (3)
  1. TRILEPTAL [Suspect]
     Dosage: 600 MG, TID
     Route: 048
     Dates: start: 2009
  2. TRILEPTAL [Suspect]
     Dosage: DECRESED 300 MG WEEKLY UNTILL DISCONTINUATION
  3. RIVOTRIL [Concomitant]
     Dosage: 1 MG, UNK

REACTIONS (1)
  - Dyskinesia [Unknown]
